FAERS Safety Report 8518409-3 (Version None)
Quarter: 2012Q3

REPORT INFORMATION
  Report Type: 
  Country: None (occurrence: None)
  Receive Date: 20120718
  Receipt Date: 20120208
  Transmission Date: 20120928
  Serious: No
  Sender: FDA-Public Use
  Company Number: US-BRISTOL-MYERS SQUIBB COMPANY-16392532

PATIENT
  Age: 83 Year
  Sex: Female
  Weight: 79 kg

DRUGS (6)
  1. CRESTOR [Concomitant]
  2. SPIRONOLACTONE [Concomitant]
  3. COUMADIN [Suspect]
  4. LISINOPRIL [Concomitant]
  5. DIGOXIN [Concomitant]
  6. PROTONIX [Concomitant]

REACTIONS (2)
  - CONTUSION [None]
  - INTERNATIONAL NORMALISED RATIO ABNORMAL [None]
